FAERS Safety Report 5385090-4 (Version None)
Quarter: 2007Q3

REPORT INFORMATION
  Report Type: 
  Country: None (occurrence: None)
  Receive Date: 20070710
  Receipt Date: 20070710
  Transmission Date: 20080115
  Serious: Yes (Other)
  Sender: FDA-Public Use
  Company Number: None

PATIENT

DRUGS (1)
  1. PENTOXIFYLLINE [Suspect]
     Indication: PERIPHERAL VASCULAR DISORDER
     Dosage: 400MG TID

REACTIONS (2)
  - ABDOMINAL PAIN [None]
  - PHARMACEUTICAL PRODUCT COMPLAINT [None]
